FAERS Safety Report 8459159-1 (Version None)
Quarter: 2012Q2

REPORT INFORMATION
  Report Type: 
  Country: None (occurrence: None)
  Receive Date: 20120622
  Receipt Date: 20120614
  Transmission Date: 20120825
  Serious: Yes (Other)
  Sender: FDA-Public Use
  Company Number: AR-ROCHE-1080416

PATIENT
  Sex: Male

DRUGS (1)
  1. LUCENTIS [Suspect]
     Indication: MACULOPATHY
     Route: 050
     Dates: start: 20100701

REACTIONS (4)
  - DISEASE PROGRESSION [None]
  - ASTHENOPIA [None]
  - MACULOPATHY [None]
  - VISUAL ACUITY REDUCED [None]
